FAERS Safety Report 13247545 (Version 1)
Quarter: 2017Q1

REPORT INFORMATION
  Report Type: Spontaneous
  Country: DE (occurrence: DE)
  Receive Date: 20170217
  Receipt Date: 20170217
  Transmission Date: 20170428
  Serious: Yes (Other)
  Sender: FDA-Public Use
  Company Number: PHHY2017DE025179

PATIENT
  Sex: Male

DRUGS (5)
  1. EXELON PATCH [Suspect]
     Active Substance: RIVASTIGMINE
     Dosage: 13.3 MG, QD PATCH 15 (CM2)
     Route: 062
     Dates: end: 20150706
  2. EXELON PATCH [Suspect]
     Active Substance: RIVASTIGMINE
     Indication: DEMENTIA ALZHEIMER^S TYPE
     Dosage: 9.5 MG, QD PATCH 10 (CM2)
     Route: 062
     Dates: start: 201210, end: 20150505
  3. LEVODOPA [Concomitant]
     Active Substance: LEVODOPA
     Indication: PARKINSON^S DISEASE
     Dosage: 100 MG, QD
     Route: 048
     Dates: start: 2002
  4. ASPIRIN. [Concomitant]
     Active Substance: ASPIRIN
     Indication: HYPERTENSION
     Dosage: 100 MG, QD
     Route: 048
     Dates: start: 2005
  5. GUTRON [Concomitant]
     Active Substance: MIDODRINE
     Indication: PERIPHERAL VASCULAR DISORDER
     Dosage: 10 GTT, TID
     Route: 048
     Dates: start: 20130603

REACTIONS (8)
  - Anal incontinence [Unknown]
  - Balance disorder [Unknown]
  - Hallucination, visual [Unknown]
  - Urinary incontinence [Unknown]
  - Gait disturbance [Unknown]
  - Arrhythmia [Unknown]
  - Glaucoma [Unknown]
  - Substance-induced psychotic disorder [Unknown]

NARRATIVE: CASE EVENT DATE: 20130408
